FAERS Safety Report 22682325 (Version 2)
Quarter: 2023Q4

REPORT INFORMATION
  Report Type: Report from Study
  Country: US (occurrence: US)
  Receive Date: 20230707
  Receipt Date: 20231109
  Transmission Date: 20240109
  Serious: Yes (Other)
  Sender: FDA-Public Use
  Company Number: US-SEATTLE GENETICS-2023SGN06688

PATIENT
  Age: 49 Year
  Sex: Female
  Weight: 68 kg

DRUGS (26)
  1. TUCATINIB [Suspect]
     Active Substance: TUCATINIB
     Indication: Invasive breast carcinoma
     Dosage: UNK
     Route: 065
     Dates: start: 20230516
  2. TUCATINIB [Suspect]
     Active Substance: TUCATINIB
     Indication: Invasive breast carcinoma
     Dosage: UNK
     Route: 065
     Dates: start: 20230516
  3. TUCATINIB [Suspect]
     Active Substance: TUCATINIB
     Dosage: 150 MG
  4. TUCATINIB [Suspect]
     Active Substance: TUCATINIB
     Dosage: 150 MG
  5. TUCATINIB [Suspect]
     Active Substance: TUCATINIB
     Dosage: 150 MG
  6. TUCATINIB [Suspect]
     Active Substance: TUCATINIB
     Dosage: 150 MG
  7. TUCATINIB [Suspect]
     Active Substance: TUCATINIB
     Dosage: 50 MG
  8. TUCATINIB [Suspect]
     Active Substance: TUCATINIB
     Dosage: 50 MG
  9. TUCATINIB [Suspect]
     Active Substance: TUCATINIB
     Dosage: 50 MG
  10. TUCATINIB [Suspect]
     Active Substance: TUCATINIB
     Dosage: 50 MG
  11. TUCATINIB [Suspect]
     Active Substance: TUCATINIB
     Dosage: 50 MG
  12. TUCATINIB [Suspect]
     Active Substance: TUCATINIB
     Dosage: 50 MG
  13. ADO-TRASTUZUMAB EMTANSINE [Suspect]
     Active Substance: ADO-TRASTUZUMAB EMTANSINE
     Indication: Invasive breast carcinoma
     Dosage: UNK
     Route: 065
     Dates: start: 20230516
  14. ATORVASTATIN [Concomitant]
     Active Substance: ATORVASTATIN
     Dosage: 20 MG, QD
  15. PROCHLORPERAZINE MALEATE [Concomitant]
     Active Substance: PROCHLORPERAZINE MALEATE
     Dosage: 10 MG, Q6HR AS NEEDED
  16. LORAZEPAM [Concomitant]
     Active Substance: LORAZEPAM
     Indication: Nausea
     Dosage: 0.5 MG, Q6HR AS NEEDED
  17. LORAZEPAM [Concomitant]
     Active Substance: LORAZEPAM
     Indication: Vomiting
  18. ATROPINE\DIPHENOXYLATE [Concomitant]
     Active Substance: ATROPINE\DIPHENOXYLATE
     Dosage: 2.5 MG-0.025 MG TABLET 4X DAILY AS NEEDED
  19. ONDANSETRON [Concomitant]
     Active Substance: ONDANSETRON
     Dosage: 8 MG EVERY 8 HOURS AS NEEDED
  20. PANTOPRAZOLE [Concomitant]
     Active Substance: PANTOPRAZOLE
     Dosage: 40 MG, QD
  21. CHOLECALCIFEROL [Concomitant]
     Active Substance: CHOLECALCIFEROL
     Dosage: 1250 MCG DAILY
  22. MONTELUKAST [Concomitant]
     Active Substance: MONTELUKAST SODIUM
     Dosage: 10 MG, QD
  23. IBUPROFEN [Concomitant]
     Active Substance: IBUPROFEN
     Dosage: 400 MG, Q6HR AS NEEDED
  24. PYRIDOXINE [Concomitant]
     Active Substance: PYRIDOXINE
     Dosage: DAILY
  25. VITAMIN B COMPLEX [Concomitant]
     Active Substance: CYANOCOBALAMIN\DEXPANTHENOL\NIACINAMIDE\PYRIDOXINE HYDROCHLORIDE\RIBOFLAVIN 5^-PHOSPHATE SODIUM\THIA
     Dosage: DAILY
  26. CALCIUM CARBONATE\CHOLECALCIFEROL [Concomitant]
     Active Substance: CALCIUM CARBONATE\CHOLECALCIFEROL
     Dosage: DAILY
     Route: 048

REACTIONS (3)
  - Thrombocytopenia [Unknown]
  - Hypokalaemia [Recovered/Resolved]
  - Diarrhoea [Recovered/Resolved]

NARRATIVE: CASE EVENT DATE: 20230611
